FAERS Safety Report 5871018-7 (Version None)
Quarter: 2008Q3

REPORT INFORMATION
  Report Type: 
  Country: None (occurrence: None)
  Receive Date: 20080829
  Receipt Date: 20080819
  Transmission Date: 20090109
  Serious: Yes (Hospitalization)
  Sender: FDA-Public Use
  Company Number: 2007BI020462

PATIENT
  Age: 42 Year
  Sex: Female

DRUGS (1)
  1. TYSABRI [Suspect]
     Indication: MULTIPLE SCLEROSIS
     Dosage: 300 MG;QM;IV
     Route: 042
     Dates: start: 20070726, end: 20071127

REACTIONS (9)
  - ABASIA [None]
  - ABDOMINAL DISTENSION [None]
  - ASTHENIA [None]
  - CHEST PAIN [None]
  - FIBROMYALGIA [None]
  - FLUID RETENTION [None]
  - MALAISE [None]
  - URINARY RETENTION [None]
  - WALKING AID USER [None]
